FAERS Safety Report 8972757 (Version 2)
Quarter: 2012Q4

REPORT INFORMATION
  Report Type: 
  Country: CA (occurrence: CA)
  Receive Date: 20121219
  Receipt Date: 20121227
  Transmission Date: 20130627
  Serious: Yes (Other)
  Sender: FDA-Public Use
  Company Number: CA-BAYER-2012-132415

PATIENT
  Age: 39 Year
  Sex: Female

DRUGS (1)
  1. MIRENA [Suspect]
     Indication: MENSTRUATION INCREASED
     Dosage: 20 mcg/24hr, CONT
     Route: 015
     Dates: start: 201212

REACTIONS (3)
  - Respiratory tract congestion [None]
  - Upper respiratory tract infection [None]
  - Dyspnoea [None]
